FAERS Safety Report 15916800 (Version 1)
Quarter: 2019Q1

REPORT INFORMATION
  Report Type: Spontaneous
  Country: US (occurrence: US)
  Receive Date: 20190205
  Receipt Date: 20190205
  Transmission Date: 20190417
  Serious: No
  Sender: FDA-Public Use
  Company Number: US-DRREDDYS-USA/USA/19/0107589

PATIENT
  Age: 58 Year
  Sex: Male

DRUGS (2)
  1. MINOCYCLINE HYDROCHLORIDE. [Suspect]
     Active Substance: MINOCYCLINE HYDROCHLORIDE
     Indication: CROHN^S DISEASE
     Dosage: (CUMULATIVE DOSE: 693 G)
     Route: 065
  2. MINOCYCLINE HYDROCHLORIDE. [Suspect]
     Active Substance: MINOCYCLINE HYDROCHLORIDE
     Dosage: DECREASED TO 100 MG PER DAY FOR ONE YEAR
     Route: 065

REACTIONS (5)
  - Skin hyperpigmentation [Unknown]
  - Conjunctival deposit [Unknown]
  - Scleral pigmentation [Unknown]
  - Skin discolouration [Unknown]
  - Nail discolouration [Unknown]
